FAERS Safety Report 4845903-9 (Version None)
Quarter: 2005Q4

REPORT INFORMATION
  Report Type: 
  Country: None (occurrence: None)
  Receive Date: 20051206
  Receipt Date: 20051130
  Transmission Date: 20060501
  Serious: Yes (Death, Hospitalization)
  Sender: FDA-Public Use
  Company Number: 2005SE06878

PATIENT
  Age: 26937 Day
  Sex: Female

DRUGS (5)
  1. LISINOPRIL [Suspect]
     Route: 048
  2. GLUCOPHAGE [Interacting]
     Route: 048
  3. MODIFENAC [Interacting]
     Dosage: 1-1X2 EACH DAY
     Route: 048
  4. XALATAN [Concomitant]
     Dosage: 1 DROP EACH EYE
     Route: 047
  5. AMARYL [Concomitant]

REACTIONS (3)
  - DRUG INTERACTION [None]
  - METABOLIC ACIDOSIS [None]
  - RENAL FAILURE [None]
